FAERS Safety Report 7878028-9 (Version None)
Quarter: 2011Q4

REPORT INFORMATION
  Report Type: 
  Country: None (occurrence: None)
  Receive Date: 20111101
  Receipt Date: 20111017
  Transmission Date: 20120403
  Serious: Yes (Other)
  Sender: FDA-Public Use
  Company Number: US-ROCHE-1005141

PATIENT

DRUGS (3)
  1. GEMCITABINE HYDROCHLORIDE [Suspect]
     Indication: RENAL CELL CARCINOMA
     Dosage: ON DAY 1 AND 8
     Route: 042
  2. XELODA [Suspect]
     Indication: RENAL CELL CARCINOMA
     Dosage: FOR 14 DAYS
     Route: 048
  3. SORAFENIB [Suspect]
     Indication: RENAL CELL CARCINOMA
     Dosage: FOR 21 DAYS
     Route: 048

REACTIONS (12)
  - FATIGUE [None]
  - NEUTROPENIA [None]
  - THROMBOCYTOPENIA [None]
  - PNEUMONIA [None]
  - PROTEINURIA [None]
  - ANAEMIA [None]
  - PALMAR-PLANTAR ERYTHRODYSAESTHESIA SYNDROME [None]
  - MUCOSAL INFLAMMATION [None]
  - ABDOMINAL PAIN [None]
  - ALANINE AMINOTRANSFERASE INCREASED [None]
  - HYPOALBUMINAEMIA [None]
  - DEEP VEIN THROMBOSIS [None]
